FAERS Safety Report 4886124-3 (Version None)
Quarter: 2006Q1

REPORT INFORMATION
  Report Type: 
  Country: None (occurrence: None)
  Receive Date: 20060117
  Receipt Date: 20060109
  Transmission Date: 20060701
  Serious: Yes (Disabling)
  Sender: FDA-Public Use
  Company Number: HQWYE280410JAN06

PATIENT
  Sex: Female

DRUGS (1)
  1. EFFEXOR [Suspect]
     Route: 048
     Dates: start: 20020101

REACTIONS (2)
  - DRUG DEPENDENCE [None]
  - NEUROPATHY [None]
